FAERS Safety Report 7691674-0 (Version None)
Quarter: 2011Q3

REPORT INFORMATION
  Report Type: 
  Country: None (occurrence: None)
  Receive Date: 20110818
  Receipt Date: 20110809
  Transmission Date: 20111222
  Serious: Yes (Hospitalization)
  Sender: FDA-Public Use
  Company Number: US-ASTRAZENECA-2011SE47501

PATIENT
  Age: 51 Year
  Sex: Female

DRUGS (11)
  1. SEROQUEL [Suspect]
     Indication: MOOD SWINGS
     Route: 048
  2. SEROQUEL [Suspect]
     Route: 048
  3. OMEPRAZOLE [Concomitant]
     Route: 048
  4. SEROQUEL [Suspect]
     Route: 048
  5. HYDRALAZINE HCL [Concomitant]
     Route: 048
  6. CARAFATE [Concomitant]
     Route: 048
  7. SEROQUEL [Suspect]
     Indication: SLEEP DISORDER
     Route: 048
  8. KLONOPIN [Concomitant]
     Route: 048
  9. SEROQUEL [Suspect]
     Indication: DEPRESSION
     Route: 048
  10. SEROQUEL [Suspect]
     Route: 048
  11. XANAX [Concomitant]
     Route: 048

REACTIONS (8)
  - NEPHROLITHIASIS [None]
  - GASTRIC DISORDER [None]
  - GASTRIC ULCER [None]
  - ABDOMINOPLASTY [None]
  - GASTRIC PERFORATION [None]
  - GASTRIC BYPASS [None]
  - URINARY TRACT INFECTION [None]
  - LITHOTRIPSY [None]
